FAERS Safety Report 13418105 (Version 3)
Quarter: 2017Q2

REPORT INFORMATION
  Report Type: Spontaneous
  Country: UA (occurrence: UA)
  Receive Date: 20170406
  Receipt Date: 20170524
  Transmission Date: 20170830
  Serious: Yes (Other)
  Sender: FDA-Public Use
  Company Number: UA-SYMPLMED PHARMACEUTICALS-2017SYMPLMED000440

PATIENT

DRUGS (4)
  1. TORVACARD [Concomitant]
     Active Substance: ATORVASTATIN CALCIUM
     Indication: PRODUCT USED FOR UNKNOWN INDICATION
     Dosage: 20 MG, QD
     Dates: start: 20170314
  2. CARDIOMAGNYL [Concomitant]
     Active Substance: ASPIRIN\MAGNESIUM HYDROXIDE
     Indication: PRODUCT USED FOR UNKNOWN INDICATION
     Dosage: UNK
     Dates: start: 20170314
  3. BI-PRESTARIUM [Suspect]
     Active Substance: AMLODIPINE BESYLATE\PERINDOPRIL ARGININE
     Indication: HYPERTENSION
     Dosage: 1 (5MG/5MG) TABLET QD
     Route: 048
     Dates: start: 20170314, end: 20170314
  4. BISOPROLOL FUMARATE. [Concomitant]
     Active Substance: BISOPROLOL FUMARATE
     Indication: PRODUCT USED FOR UNKNOWN INDICATION
     Dosage: 2.5 MG, QD
     Dates: start: 20170314

REACTIONS (4)
  - Hypertensive crisis [Recovered/Resolved]
  - Chills [Recovered/Resolved]
  - Idiosyncratic drug reaction [Unknown]
  - Suspected counterfeit product [Recovered/Resolved]

NARRATIVE: CASE EVENT DATE: 20170314
